FAERS Safety Report 4935519-8 (Version None)
Quarter: 2006Q1

REPORT INFORMATION
  Report Type: 
  Country: None (occurrence: None)
  Receive Date: 20060307
  Receipt Date: 20051202
  Transmission Date: 20060701
  Serious: Yes (Other)
  Sender: FDA-Public Use
  Company Number: FR-GLAXOSMITHKLINE-B0402349A

PATIENT
  Age: 78 Year
  Sex: Male
  Weight: 70 kg

DRUGS (6)
  1. AVODART [Suspect]
     Indication: BENIGN PROSTATIC HYPERPLASIA
     Dosage: .5MG PER DAY
     Route: 048
     Dates: start: 20050101, end: 20051101
  2. KARDEGIC [Suspect]
     Indication: CORONARY ARTERY STENOSIS
     Dosage: 75MG PER DAY
     Route: 048
     Dates: start: 19960101
  3. LOXEN [Concomitant]
     Indication: HYPERTENSION
     Route: 048
     Dates: start: 19960101
  4. SOTALOL HCL [Concomitant]
  5. HYPERIUM [Concomitant]
     Indication: HYPERTENSION
     Dosage: 1MG PER DAY
     Route: 048
     Dates: start: 19960101
  6. LEXOMIL [Concomitant]

REACTIONS (2)
  - MYELODYSPLASTIC SYNDROME [None]
  - THROMBOCYTOPENIA [None]
